FAERS Safety Report 6143767-7 (Version None)
Quarter: 2009Q2

REPORT INFORMATION
  Report Type: 
  Country: None (occurrence: None)
  Receive Date: 20090403
  Receipt Date: 20090324
  Transmission Date: 20091009
  Serious: Yes (Hospitalization)
  Sender: FDA-Public Use
  Company Number: PHHY2008JP19983

PATIENT
  Age: 27 Year
  Sex: Female
  Weight: 80 kg

DRUGS (13)
  1. EXJADE [Suspect]
     Indication: IRON OVERLOAD
     Dosage: 1500 MG, QD
     Route: 048
     Dates: start: 20080616, end: 20080728
  2. EXJADE [Suspect]
     Dosage: 500 MG, QD
     Route: 048
     Dates: start: 20080729, end: 20080811
  3. EXJADE [Suspect]
     Dosage: 1000 MG, QD
     Route: 048
     Dates: start: 20080812, end: 20080828
  4. EXJADE [Suspect]
     Dosage: 500 MG
     Route: 048
     Dates: start: 20080829, end: 20080911
  5. EXJADE [Suspect]
     Dosage: 750MG
     Route: 048
     Dates: start: 20080912, end: 20081026
  6. EXJADE [Suspect]
     Dosage: 1000MG
     Route: 048
     Dates: start: 20081027, end: 20081108
  7. CYCLOPHOSPHAMIDE [Suspect]
     Dosage: 580MG
     Dates: start: 20081101, end: 20081104
  8. SOLU-MEDROL [Concomitant]
     Dosage: 170MG
     Dates: start: 20081031
  9. SOLU-MEDROL [Concomitant]
     Dosage: 80MG
  10. SOLU-MEDROL [Concomitant]
     Dosage: 40MG
     Dates: end: 20081108
  11. PREDNISOLONE [Concomitant]
     Dosage: 20MG
     Dates: start: 20081109
  12. PREDNISOLONE [Concomitant]
     Dosage: 10MG
     Dates: end: 20081112
  13. TACROLIMUS [Concomitant]
     Dosage: 2MG
     Dates: start: 20081106, end: 20090105

REACTIONS (3)
  - BLOOD CREATININE INCREASED [None]
  - RENAL IMPAIRMENT [None]
  - TRANSPLANT [None]
